FAERS Safety Report 9046432 (Version 1)
Quarter: 2013Q1

REPORT INFORMATION
  Report Type: Report from Study
  Country: US (occurrence: US)
  Receive Date: 20130130
  Receipt Date: 20130130
  Transmission Date: 20140127
  Serious: No
  Sender: FDA-Public Use
  Company Number: US-ABBOTT-12P-163-0962716-00

PATIENT
  Age: 38 None
  Sex: Female
  Weight: 56.3 kg

DRUGS (7)
  1. HUMIRA 40 MG/ 0.8 ML PRE-FILLED SYRINGE [Suspect]
     Indication: CROHN^S DISEASE
     Route: 058
     Dates: start: 201012
  2. ONDASETRON [Concomitant]
     Indication: PRODUCT USED FOR UNKNOWN INDICATION
  3. CLONAZEPAM [Concomitant]
     Indication: PRODUCT USED FOR UNKNOWN INDICATION
  4. FLUTOCASONE NASAL SPRAY [Concomitant]
     Indication: PRODUCT USED FOR UNKNOWN INDICATION
     Route: 045
  5. HYOSCYAMINE [Concomitant]
     Indication: PRODUCT USED FOR UNKNOWN INDICATION
  6. XIFAXAN [Concomitant]
     Indication: PRODUCT USED FOR UNKNOWN INDICATION
  7. CHLORDIAZEPOXIDE W/CLIDINIUM [Concomitant]
     Indication: PRODUCT USED FOR UNKNOWN INDICATION

REACTIONS (4)
  - Foreign body [Recovered/Resolved]
  - Vomiting [Recovered/Resolved]
  - Abdominal pain [Not Recovered/Not Resolved]
  - Nausea [Not Recovered/Not Resolved]
